FAERS Safety Report 10103092 (Version 1)
Quarter: 2014Q2

REPORT INFORMATION
  Report Type: Spontaneous
  Country: US (occurrence: US)
  Receive Date: 20140424
  Receipt Date: 20140424
  Transmission Date: 20141212
  Serious: Yes (Hospitalization, Other)
  Sender: FDA-Public Use
  Company Number: PHEH2014US008067

PATIENT
  Age: 74 Year
  Sex: Female

DRUGS (4)
  1. MYFORTIC [Suspect]
     Indication: RENAL TRANSPLANT
     Dosage: UNK UKN, UNK
  2. MYFORTIC [Suspect]
     Dosage: 720 MG (2 OF 360 MG), PER DAY
  3. PREDNISONE [Suspect]
     Indication: RENAL TRANSPLANT
     Dosage: UNK UKN, UNK
     Dates: start: 20120315
  4. NULOJIX [Suspect]
     Indication: RENAL TRANSPLANT
     Dosage: UNK UKN, UNK
     Dates: start: 20120319

REACTIONS (6)
  - Deafness bilateral [Unknown]
  - Urinary tract infection [Recovering/Resolving]
  - Anaemia [Unknown]
  - Cerebral infarction [Unknown]
  - Central nervous system lesion [Unknown]
  - JC virus infection [Unknown]
